FAERS Safety Report 8581289-4 (Version None)
Quarter: 2012Q3

REPORT INFORMATION
  Report Type: 
  Country: None (occurrence: None)
  Receive Date: 20120809
  Receipt Date: 20120807
  Transmission Date: 20120928
  Serious: Yes (Death, Life-Threatening, Hospitalization, Disabling)
  Sender: FDA-Public Use
  Company Number: PHHY2012GR065457

PATIENT
  Sex: Female

DRUGS (7)
  1. AMOXIL [Concomitant]
     Indication: INFLAMMATION
     Dates: start: 20120527
  2. AFINITOR [Suspect]
     Indication: BREAST CANCER
     Dosage: 10 MG, DAILY
     Route: 048
     Dates: start: 20120521, end: 20120729
  3. BUSPIRONE HYDROCHLORIDE [Suspect]
     Indication: INSOMNIA
     Dates: start: 20120727, end: 20120729
  4. T4 [Concomitant]
     Indication: HYPERTHYROIDISM
     Dosage: 100 MG, UNK
  5. AROMASIN [Concomitant]
     Indication: BREAST CANCER
     Route: 048
     Dates: start: 20120521, end: 20120729
  6. EXELON [Concomitant]
     Indication: DEMENTIA
     Dosage: 4.6 (1X1)
  7. DUFALONE [Concomitant]
     Indication: OEDEMA
     Dates: start: 20120521, end: 20120729

REACTIONS (8)
  - NEOPLASM MALIGNANT [None]
  - SOMNOLENCE [None]
  - METASTASES TO CHEST WALL [None]
  - NEOPLASM PROGRESSION [None]
  - PLEURAL EFFUSION [None]
  - HYPERCAPNIA [None]
  - LETHARGY [None]
  - PYREXIA [None]
